FAERS Safety Report 8728276 (Version 2)
Quarter: 2012Q4

REPORT INFORMATION
  Report Type: 
  Country: JP (occurrence: JP)
  Receive Date: 20120817
  Receipt Date: 20121112
  Transmission Date: 20130627
  Serious: No
  Sender: FDA-Public Use
  Company Number: JP-ELI_LILLY_AND_COMPANY-JP201208002092

PATIENT
  Age: 52 Year
  Sex: Male

DRUGS (6)
  1. CYMBALTA [Suspect]
     Indication: DIABETIC NEUROPATHY
     Dosage: 20 mg, qd
     Route: 048
     Dates: start: 20120612, end: 20120625
  2. CYMBALTA [Suspect]
     Dosage: 30 mg, qd
     Route: 048
     Dates: start: 20120626, end: 20120723
  3. CYMBALTA [Suspect]
     Dosage: 40 mg, qd
     Route: 048
     Dates: start: 20120724, end: 20120724
  4. AMARYL [Concomitant]
     Dosage: UNK
     Route: 048
  5. SEIBULE [Concomitant]
     Dosage: UNK
     Route: 048
  6. GASCON [Concomitant]
     Dosage: UNK
     Route: 048

REACTIONS (1)
  - Hepatic function abnormal [Recovered/Resolved]
